FAERS Safety Report 10232093 (Version 1)
Quarter: 2014Q2

REPORT INFORMATION
  Report Type: Spontaneous
  Country: PR (occurrence: PR)
  Receive Date: 20140612
  Receipt Date: 20140612
  Transmission Date: 20141212
  Serious: No
  Sender: FDA-Public Use
  Company Number: PR-BIOGENIDEC-2014BI050631

PATIENT
  Age: 32 Year
  Sex: Female

DRUGS (6)
  1. TECFIDERA [Suspect]
     Indication: MULTIPLE SCLEROSIS
     Route: 048
  2. NEURONTIN [Concomitant]
  3. OMEGA 3 [Concomitant]
  4. CENTRUM [Concomitant]
  5. VIT B12 [Concomitant]
  6. D3 [Concomitant]

REACTIONS (1)
  - Off label use [Unknown]
